FAERS Safety Report 24454238 (Version 2)
Quarter: 2024Q4

REPORT INFORMATION
  Report Type: Report from Study
  Country: US (occurrence: US)
  Receive Date: 20241017
  Receipt Date: 20241018
  Transmission Date: 20250115
  Serious: No
  Sender: ROCHE
  Company Number: US-ROCHE-3467714

PATIENT
  Age: 57 Year
  Sex: Male

DRUGS (5)
  1. RITUXAN [Suspect]
     Active Substance: RITUXIMAB
     Indication: Myelitis transverse
     Dosage: INFUSE 100ML INTO VENOUS CATHETER ONCE EVERY 2 WEEKS FOR 2 DOSES
     Route: 042
     Dates: start: 20210210, end: 20210225
  2. RITUXAN [Suspect]
     Active Substance: RITUXIMAB
     Indication: Antiphospholipid syndrome
     Dosage: THE THERAPY STOP DATE WILL BE 14/DEC/2023
     Route: 042
     Dates: start: 20231129
  3. RITUXAN [Suspect]
     Active Substance: RITUXIMAB
     Indication: Antibody test positive
  4. RITUXAN [Suspect]
     Active Substance: RITUXIMAB
     Indication: Sarcoidosis
  5. ACETAMINOPHEN [Concomitant]
     Active Substance: ACETAMINOPHEN

REACTIONS (2)
  - Off label use [Unknown]
  - No adverse event [Unknown]
